FAERS Safety Report 12781530 (Version 1)
Quarter: 2016Q3

REPORT INFORMATION
  Report Type: Spontaneous
  Country: HR (occurrence: HR)
  Receive Date: 20160926
  Receipt Date: 20160926
  Transmission Date: 20161109
  Serious: Yes (Hospitalization)
  Sender: FDA-Public Use
  Company Number: HR-PFIZER INC-2016448125

PATIENT
  Age: 13 Year
  Sex: Female
  Weight: 60 kg

DRUGS (1)
  1. ZOLOFT [Suspect]
     Active Substance: SERTRALINE HYDROCHLORIDE
     Dosage: 7-8 TABLETS OF 50 MG
     Route: 048
     Dates: start: 20160220, end: 20160220

REACTIONS (4)
  - Nausea [Unknown]
  - Suicide attempt [Unknown]
  - Intentional overdose [Unknown]
  - Chills [Unknown]

NARRATIVE: CASE EVENT DATE: 2016
